FAERS Safety Report 8935852 (Version 2)
Quarter: 2012Q4

REPORT INFORMATION
  Report Type: 
  Country: IT (occurrence: IT)
  Receive Date: 20121130
  Receipt Date: 20121214
  Transmission Date: 20130627
  Serious: Yes (Death, Other)
  Sender: FDA-Public Use
  Company Number: IT-BRISTOL-MYERS SQUIBB COMPANY-17147281

PATIENT
  Sex: Male

DRUGS (1)
  1. ENTECAVIR [Suspect]
     Indication: CHRONIC HEPATITIS B
     Dates: start: 2012

REACTIONS (6)
  - General physical health deterioration [Fatal]
  - Lactic acidosis [Unknown]
  - Myasthenic syndrome [Unknown]
  - Malignant neoplasm progression [Unknown]
  - Asthenia [Unknown]
  - Blood creatine phosphokinase increased [Unknown]
